FAERS Safety Report 8545075-3 (Version None)
Quarter: 2012Q3

REPORT INFORMATION
  Report Type: 
  Country: None (occurrence: None)
  Receive Date: 20120727
  Receipt Date: 20120716
  Transmission Date: 20120928
  Serious: Yes (Disabling, Other)
  Sender: FDA-Public Use
  Company Number: US-009507513-1202USA03893

PATIENT

DRUGS (2)
  1. FOSAMAX [Suspect]
     Indication: OSTEOPOROSIS
     Route: 048
     Dates: start: 20040401, end: 20081201
  2. FEXOFENADINE HYDROCHLORIDE [Concomitant]
     Indication: HYPERSENSITIVITY
     Dosage: UNK
     Dates: start: 20041101

REACTIONS (29)
  - SHOULDER OPERATION [None]
  - GINGIVITIS [None]
  - MIGRAINE [None]
  - WEIGHT DECREASED [None]
  - HYPERCALCIURIA [None]
  - MUSCLE STRAIN [None]
  - TOOTH DISORDER [None]
  - DEVICE FAILURE [None]
  - FISTULA [None]
  - BACK PAIN [None]
  - GASTROOESOPHAGEAL REFLUX DISEASE [None]
  - OSTEONECROSIS OF JAW [None]
  - DENTAL IMPLANTATION [None]
  - HYPERLIPIDAEMIA [None]
  - JAW DISORDER [None]
  - ORAL PAIN [None]
  - SCAR [None]
  - TOOTH INFECTION [None]
  - PYOGENIC GRANULOMA [None]
  - DENTAL CARIES [None]
  - ORAL FIBROMA [None]
  - JAW FRACTURE [None]
  - ORAL DISORDER [None]
  - KNEE OPERATION [None]
  - ANXIETY [None]
  - HYPOTHYROIDISM [None]
  - CATARACT [None]
  - DYSGEUSIA [None]
  - OSTEOMYELITIS [None]
